FAERS Safety Report 13185256 (Version 2)
Quarter: 2017Q1

REPORT INFORMATION
  Report Type: Report from Study
  Country: US (occurrence: US)
  Receive Date: 20170203
  Receipt Date: 20170329
  Transmission Date: 20170428
  Serious: No
  Sender: FDA-Public Use
  Company Number: PHEH2017US003528

PATIENT
  Sex: Female
  Weight: 62.59 kg

DRUGS (2)
  1. GILENYA [Suspect]
     Active Substance: FINGOLIMOD HYDROCHLORIDE
     Indication: MULTIPLE SCLEROSIS
     Dosage: 0.5 MG, QD
     Route: 048
  2. GILENYA [Suspect]
     Active Substance: FINGOLIMOD HYDROCHLORIDE
     Dosage: UNK, QOD
     Route: 065

REACTIONS (5)
  - Pain [Unknown]
  - Asthenia [Unknown]
  - Prescribed underdose [Unknown]
  - Limb discomfort [Unknown]
  - Liver disorder [Recovering/Resolving]
